FAERS Safety Report 8440714-X (Version None)
Quarter: 2012Q2

REPORT INFORMATION
  Report Type: 
  Country: None (occurrence: None)
  Receive Date: 20120615
  Receipt Date: 20120607
  Transmission Date: 20120825
  Serious: Yes (Hospitalization)
  Sender: FDA-Public Use
  Company Number: US-BAYER-2012-014318

PATIENT
  Age: 47 Year
  Sex: Female
  Weight: 61.224 kg

DRUGS (6)
  1. ASCORBIC ACID [Concomitant]
     Indication: GENERAL SYMPTOM
     Dosage: 500 MG, PER DAY
     Route: 048
     Dates: start: 19990101, end: 20090101
  2. SYNTHROID [Concomitant]
     Indication: HYPOTHYROIDISM
     Dosage: UNK
     Route: 048
     Dates: start: 19990101
  3. DILAUDID [Concomitant]
  4. YAZ [Suspect]
     Dosage: UNK
     Dates: start: 20091001, end: 20091101
  5. CALCIUM CARBONATE [Concomitant]
     Indication: HYPOVITAMINOSIS
     Dosage: 1 A DAY
     Route: 048
     Dates: start: 19990101, end: 20090101
  6. ZOFRAN [Concomitant]

REACTIONS (7)
  - BILIARY DYSKINESIA [None]
  - PAIN [None]
  - ANHEDONIA [None]
  - GALLBLADDER DISORDER [None]
  - ABDOMINAL PAIN [None]
  - BRONCHITIS [None]
  - ANXIETY [None]
